FAERS Safety Report 19100265 (Version 3)
Quarter: 2021Q2

REPORT INFORMATION
  Report Type: Spontaneous
  Country: US (occurrence: US)
  Receive Date: 20210407
  Receipt Date: 20210429
  Transmission Date: 20210717
  Serious: Yes (Other)
  Sender: FDA-Public Use
  Company Number: US-AUROBINDO-AUR-APL-2021-013504

PATIENT
  Age: 2 Year
  Sex: Female

DRUGS (9)
  1. SULFAMETHOXAZOLE;TRIMETHOPRIM [Concomitant]
     Active Substance: SULFAMETHOXAZOLE\TRIMETHOPRIM
     Indication: PROPHYLAXIS
     Dosage: UNK
     Route: 065
  2. FLUCONAZOLE. [Concomitant]
     Active Substance: FLUCONAZOLE
     Indication: PROPHYLAXIS
     Dosage: UNK
     Route: 065
  3. DEXAMETHASONE. [Suspect]
     Active Substance: DEXAMETHASONE
     Indication: IRRITABILITY
     Dosage: 10 MILLIGRAM/SQ. METER
     Route: 048
  4. ETOPOSIDE. [Suspect]
     Active Substance: ETOPOSIDE
     Dosage: 37.5 MILLIGRAM/SQ. METER (THE FIRST TWO DOSES WERE 37.5 MG/M2 AND THE THIRD DOSE WAS 112MG/M2)
     Route: 042
  5. ACICLOVIR [Concomitant]
     Active Substance: ACYCLOVIR
     Indication: PROPHYLAXIS
     Dosage: UNK
     Route: 065
  6. ETOPOSIDE. [Suspect]
     Active Substance: ETOPOSIDE
     Indication: HAEMOPHAGOCYTIC LYMPHOHISTIOCYTOSIS
     Dosage: 150 MILLIGRAM/SQ. METER (THE FIRST TWO DOSES WERE 37.5 MG/M2 AND THE THIRD DOSE WAS 112MG/M2 )
     Route: 042
  7. ETOPOSIDE. [Suspect]
     Active Substance: ETOPOSIDE
     Dosage: 112 MILLIGRAM/SQ. METER (THE FIRST TWO DOSES WERE 37.5 MG/M2 AND THE THIRD DOSE WAS 112MG/M2)
     Route: 042
  8. EMAPALUMAB [Suspect]
     Active Substance: EMAPALUMAB
     Indication: HAEMOPHAGOCYTIC LYMPHOHISTIOCYTOSIS
     Dosage: 1 MILLIGRAM/KILOGRAM, 0.5 WEEK (1 MG/KG/DOSE TWICE A WEEK)
     Route: 042
  9. DEXAMETHASONE. [Suspect]
     Active Substance: DEXAMETHASONE
     Indication: HAEMOPHAGOCYTIC LYMPHOHISTIOCYTOSIS

REACTIONS (2)
  - Staphylococcal bacteraemia [Recovered/Resolved]
  - Catheter site discharge [Recovered/Resolved]
